FAERS Safety Report 6013201-6 (Version None)
Quarter: 2008Q4

REPORT INFORMATION
  Report Type: 
  Country: None (occurrence: None)
  Receive Date: 20081219
  Receipt Date: 20081215
  Transmission Date: 20090506
  Serious: Yes (Hospitalization)
  Sender: FDA-Public Use
  Company Number: DE-ELI_LILLY_AND_COMPANY-DE200812004246

PATIENT
  Sex: Male

DRUGS (7)
  1. BYETTA [Suspect]
     Indication: TYPE 2 DIABETES MELLITUS
     Dosage: 10 UG, 2/D
     Route: 058
     Dates: start: 20080407, end: 20081013
  2. METFORMIN HCL [Concomitant]
     Dosage: UNK, 2/D
     Route: 065
     Dates: start: 20050101
  3. TORSEMIDE [Concomitant]
     Dosage: 5 MG, 2/D
     Route: 065
  4. RAMIPRIL [Concomitant]
     Dosage: UNK, DAILY (1/D)
     Route: 065
  5. SIMVAHEXAL [Concomitant]
     Dosage: UNK, DAILY (1/D)
     Route: 065
  6. LEVOTHYROXINE SODIUM [Concomitant]
     Dosage: UNK, DAILY (1/D)
     Route: 065
  7. PANTOZOL [Concomitant]
     Dosage: UNK, DAILY (1/D)
     Route: 065

REACTIONS (1)
  - PANCREATITIS ACUTE [None]
